FAERS Safety Report 24334469 (Version 1)
Quarter: 2024Q3

REPORT INFORMATION
  Report Type: Spontaneous
  Country: US (occurrence: US)
  Receive Date: 20240918
  Receipt Date: 20240918
  Transmission Date: 20241016
  Serious: Yes (Other)
  Sender: SUNOVION
  Company Number: US-SMPA-2024SPA002487

PATIENT

DRUGS (8)
  1. APTIOM [Suspect]
     Active Substance: ESLICARBAZEPINE ACETATE
     Indication: Epilepsy
     Dosage: 1000 MG (800MG OF APTIOM AT NIGHT (START DATE: ^FOR 5 YEARS^) AND 200MG OF APTIOM IN THE MORNING (ST
     Route: 048
  2. LIPITOR [Concomitant]
     Active Substance: ATORVASTATIN CALCIUM
     Indication: Blood cholesterol abnormal
     Dosage: 20 MG, QD
     Route: 065
     Dates: start: 2016
  3. CYMBALTA [Concomitant]
     Active Substance: DULOXETINE HYDROCHLORIDE
     Indication: Fibromyalgia
     Dosage: 120 MG, QD
     Route: 065
     Dates: start: 201708
  4. INTUNIV [Concomitant]
     Active Substance: GUANFACINE HYDROCHLORIDE
     Indication: Mood swings
     Dosage: EITHER 0.1 OR A 10MG, QD
     Route: 065
     Dates: start: 202407
  5. ADDERALL [Concomitant]
     Active Substance: AMPHETAMINE ASPARTATE\AMPHETAMINE SULFATE\DEXTROAMPHETAMINE SACCHARATE\DEXTROAMPHETAMINE SULFATE
     Indication: Attention deficit hyperactivity disorder
     Dosage: 10 MG, QD
     Route: 065
     Dates: start: 20240819
  6. ROPINIROLE [Concomitant]
     Active Substance: ROPINIROLE
     Indication: Restless legs syndrome
     Dosage: 0.1 MG, QD (AT NIGHT)
     Route: 065
     Dates: start: 202407
  7. TRAZODONE [Concomitant]
     Active Substance: TRAZODONE HYDROCHLORIDE
     Indication: Sleep disorder
     Dosage: 100 MG, QD, 6 YEARS AGO (AT NIGHT )
     Route: 065
  8. VIMPAT [Concomitant]
     Active Substance: LACOSAMIDE
     Indication: Epilepsy
     Dosage: 150 MG, BID
     Route: 065
     Dates: start: 2017

REACTIONS (13)
  - Generalised tonic-clonic seizure [Unknown]
  - Metabolic disorder [Unknown]
  - Body height decreased [Unknown]
  - Spinal disorder [Unknown]
  - Blood iron decreased [Unknown]
  - Platelet count increased [Unknown]
  - Neutrophil count increased [Unknown]
  - Blood glucose increased [Unknown]
  - Blood chloride decreased [Unknown]
  - Protein total decreased [Unknown]
  - Loss of personal independence in daily activities [Unknown]
  - Blood sodium decreased [Unknown]
  - Inappropriate schedule of product administration [Unknown]

NARRATIVE: CASE EVENT DATE: 20240618
